FAERS Safety Report 5909215-4 (Version None)
Quarter: 2008Q4

REPORT INFORMATION
  Report Type: 
  Country: None (occurrence: None)
  Receive Date: 20081006
  Receipt Date: 20080929
  Transmission Date: 20090506
  Serious: Yes (Other)
  Sender: FDA-Public Use
  Company Number: PHEH2008US08704

PATIENT
  Sex: Female

DRUGS (3)
  1. ZOMETA [Suspect]
  2. AREDIA [Suspect]
  3. PAMIDRONATE DISODIUM [Suspect]

REACTIONS (4)
  - INFECTION [None]
  - OSTEONECROSIS [None]
  - PAIN [None]
  - SCAR [None]
